FAERS Safety Report 8966315 (Version 1)
Quarter: 2012Q4

REPORT INFORMATION
  Report Type: 
  Country: DE (occurrence: DE)
  Receive Date: 20121214
  Receipt Date: 20121214
  Transmission Date: 20130627
  Serious: Yes (Hospitalization)
  Sender: FDA-Public Use
  Company Number: DE-ELI_LILLY_AND_COMPANY-DE201212002118

PATIENT
  Sex: Male

DRUGS (4)
  1. BYDUREON [Suspect]
     Indication: DIABETES MELLITUS
     Dosage: 2 mg, weekly (1/W)
     Route: 058
     Dates: start: 201210
  2. RAMIPRIL [Concomitant]
  3. CANDESARTAN [Concomitant]
  4. METFORMIN [Concomitant]
     Dosage: 1700 mg, qd

REACTIONS (5)
  - Pain of skin [Recovered/Resolved]
  - Skin mass [Recovered/Resolved]
  - Rash generalised [Recovered/Resolved]
  - Pruritus [Recovered/Resolved]
  - Injection site nodule [Recovered/Resolved]
